FAERS Safety Report 15730821 (Version 1)
Quarter: 2018Q4

REPORT INFORMATION
  Report Type: Spontaneous
  Country: US (occurrence: US)
  Receive Date: 20181217
  Receipt Date: 20181217
  Transmission Date: 20190205
  Serious: No
  Sender: FDA-Public Use
  Company Number: US-SA-2018SA342048

PATIENT
  Sex: Female

DRUGS (2)
  1. PRALUENT [Suspect]
     Active Substance: ALIROCUMAB
     Indication: PROPHYLAXIS
     Dosage: 1 DF, QOW
     Route: 058
     Dates: start: 20180924
  2. PENICILLIN VK [Concomitant]
     Active Substance: PENICILLIN V POTASSIUM

REACTIONS (4)
  - Slow speech [Unknown]
  - Muscular weakness [Unknown]
  - Amnesia [Unknown]
  - Fall [Unknown]

NARRATIVE: CASE EVENT DATE: 201811
